FAERS Safety Report 5713239-X (Version None)
Quarter: 2008Q2

REPORT INFORMATION
  Report Type: 
  Country: None (occurrence: None)
  Receive Date: 20080422
  Receipt Date: 20001010
  Transmission Date: 20081010
  Serious: Yes (Death)
  Sender: FDA-Public Use
  Company Number: BE-ROCHE-247199

PATIENT
  Sex: Female

DRUGS (6)
  1. CAPECITABINE [Suspect]
     Indication: BREAST CANCER
     Dosage: ADMINISTERED FOR 14 DAYS FOLLOWED BY 7 DAYS REST.
     Route: 048
     Dates: start: 20000831
  2. MEDROL [Concomitant]
     Route: 048
     Dates: start: 20000801, end: 20000914
  3. MS CONTIN [Concomitant]
     Route: 048
     Dates: start: 20000801, end: 20000914
  4. MESULID [Concomitant]
     Route: 048
     Dates: start: 20000801, end: 20000914
  5. CITALOPRAM HYDROBROMIDE [Concomitant]
     Route: 048
     Dates: start: 20000801, end: 20000914
  6. XANAX [Concomitant]
     Route: 048
     Dates: start: 20000801, end: 20000914

REACTIONS (1)
  - DEATH [None]
